FAERS Safety Report 6241563-3 (Version None)
Quarter: 2009Q2

REPORT INFORMATION
  Report Type: 
  Country: None (occurrence: None)
  Receive Date: 20090623
  Receipt Date: 20030623
  Transmission Date: 20091009
  Serious: Yes (Hospitalization)
  Sender: FDA-Public Use
  Company Number: BR-ROCHE-340430

PATIENT
  Sex: Male
  Weight: 84 kg

DRUGS (21)
  1. DACLIZUMAB [Suspect]
     Route: 042
     Dates: start: 20030401
  2. DACLIZUMAB [Suspect]
     Route: 042
     Dates: start: 20030415
  3. DACLIZUMAB [Suspect]
     Route: 042
     Dates: start: 20030429
  4. DACLIZUMAB [Suspect]
     Route: 042
     Dates: start: 20030513
  5. DACLIZUMAB [Suspect]
     Route: 042
     Dates: start: 20030527
  6. MYCOPHENOLATE MOFETIL [Suspect]
     Dosage: DRUG REPORTED: MICOFENOLATO MOFETIL
     Route: 048
     Dates: start: 20030329
  7. SIROLIMUS [Suspect]
     Route: 048
     Dates: start: 20030329
  8. SIROLIMUS [Suspect]
     Route: 048
     Dates: start: 20030401
  9. SIROLIMUS [Suspect]
     Route: 048
     Dates: start: 20030422
  10. SIROLIMUS [Suspect]
     Route: 048
     Dates: start: 20040109
  11. PREDNISONE [Suspect]
     Route: 048
     Dates: start: 20030330
  12. PREDNISONE [Suspect]
     Route: 048
     Dates: start: 20030415
  13. PREDNISONE [Suspect]
     Route: 048
     Dates: start: 20030422
  14. PREDNISONE [Suspect]
     Route: 048
     Dates: start: 20030429
  15. PREDNISONE [Suspect]
     Route: 048
     Dates: start: 20030506
  16. PREDNISONE [Suspect]
     Route: 048
     Dates: start: 20030513
  17. PREDNISONE [Suspect]
     Route: 048
     Dates: start: 20030527
  18. PREDNISONE [Suspect]
     Route: 048
     Dates: start: 20030610
  19. SULFAMETHOXAZOLE AND TRIMETHOPRIM [Concomitant]
     Dosage: DRUG REPORTED: SULFAMETHOXAZOL+TRIMETHOPRIM
     Route: 048
     Dates: start: 20030407
  20. CEFAZOLIN [Concomitant]
     Route: 042
     Dates: start: 20030401, end: 20030404
  21. RANITIDINE [Concomitant]
     Route: 048
     Dates: start: 20030329

REACTIONS (1)
  - URINARY TRACT INFECTION [None]
